FAERS Safety Report 7607291-4 (Version None)
Quarter: 2011Q3

REPORT INFORMATION
  Report Type: 
  Country: None (occurrence: None)
  Receive Date: 20110713
  Receipt Date: 20110701
  Transmission Date: 20111222
  Serious: Yes (Hospitalization, Other)
  Sender: FDA-Public Use
  Company Number: PHHY2011FR59208

PATIENT
  Sex: Female

DRUGS (11)
  1. DELURSAN [Concomitant]
  2. LYRICA [Concomitant]
  3. EXJADE [Suspect]
     Indication: HAEMOSIDEROSIS
     Dosage: 4 DF, DAILY
     Dates: start: 20080122
  4. ESOMEPRAZOLE MAGNESIUM [Concomitant]
     Dates: end: 20110421
  5. CLONAZEPAM [Concomitant]
  6. LEVOTHYROXINE SODIUM [Concomitant]
  7. SOTALOL HCL [Concomitant]
  8. ASPIRIN [Concomitant]
  9. ENALAPRIL MALEATE [Concomitant]
  10. ACETAMINOPHEN [Concomitant]
  11. FIXICAL D3 [Concomitant]

REACTIONS (6)
  - GASTRITIS [None]
  - HIATUS HERNIA [None]
  - OESOPHAGITIS [None]
  - CALCULUS URINARY [None]
  - GASTRITIS HAEMORRHAGIC [None]
  - ABDOMINAL PAIN [None]
